FAERS Safety Report 26036861 (Version 1)
Quarter: 2025Q4

REPORT INFORMATION
  Report Type: Other
  Country: US (occurrence: US)
  Receive Date: 20251112
  Receipt Date: 20251112
  Transmission Date: 20260118
  Serious: No
  Sender: PARATEK PHARMACEUTICALS
  Company Number: US-PARATEK PHARMACEUTICALS, INC.-2023PTK00582

PATIENT
  Sex: Male

DRUGS (12)
  1. OMADACYCLINE [Suspect]
     Active Substance: OMADACYCLINE
     Indication: Mycobacterium abscessus infection
     Route: 048
  2. OMADACYCLINE [Suspect]
     Active Substance: OMADACYCLINE
     Indication: Pneumonia bacterial
  3. ZITHROMAX [Suspect]
     Active Substance: AZITHROMYCIN DIHYDRATE
     Indication: Mycobacterium abscessus infection
     Dosage: UNK
     Route: 048
  4. ZITHROMAX [Suspect]
     Active Substance: AZITHROMYCIN DIHYDRATE
     Indication: Pneumonia bacterial
  5. IMIPENEM [Suspect]
     Active Substance: IMIPENEM
     Indication: Mycobacterium abscessus infection
     Route: 042
  6. IMIPENEM [Suspect]
     Active Substance: IMIPENEM
     Indication: Pneumonia bacterial
  7. TIGECYCLINE [Suspect]
     Active Substance: TIGECYCLINE
     Indication: Mycobacterium abscessus infection
  8. TIGECYCLINE [Suspect]
     Active Substance: TIGECYCLINE
     Indication: Pneumonia bacterial
  9. AMIKACIN [Suspect]
     Active Substance: AMIKACIN
     Indication: Mycobacterium abscessus infection
  10. AMIKACIN [Suspect]
     Active Substance: AMIKACIN
     Indication: Pneumonia bacterial
  11. CLOFAZIMINE [Suspect]
     Active Substance: CLOFAZIMINE
     Indication: Mycobacterium abscessus infection
     Dosage: 100 MG, 1X/DAY
  12. CLOFAZIMINE [Suspect]
     Active Substance: CLOFAZIMINE
     Indication: Pneumonia bacterial

REACTIONS (3)
  - Vomiting [Unknown]
  - Nausea [Unknown]
  - Drug ineffective for unapproved indication [Unknown]
